FAERS Safety Report 8124860-6 (Version None)
Quarter: 2012Q1

REPORT INFORMATION
  Report Type: 
  Country: None (occurrence: None)
  Receive Date: 20120209
  Receipt Date: 20120201
  Transmission Date: 20120608
  Serious: Yes (Other)
  Sender: FDA-Public Use
  Company Number: RU-SANOFI-AVENTIS-2012SA006875

PATIENT
  Sex: Male

DRUGS (4)
  1. PLAVIX [Suspect]
     Indication: THROMBOSIS PROPHYLAXIS
     Route: 048
     Dates: start: 20110101
  2. ACETYLSALICYLIC ACID/MAGNESIUM [Suspect]
     Indication: MYOCARDIAL INFARCTION
     Dosage: 75MG/15.2MG DAILY
     Route: 048
     Dates: start: 20110101, end: 20111201
  3. ACETYLSALICYLIC ACID/MAGNESIUM [Suspect]
     Indication: THROMBOSIS PROPHYLAXIS
     Dosage: 75MG/15.2MG DAILY
     Route: 048
     Dates: start: 20110101, end: 20111201
  4. PLAVIX [Suspect]
     Indication: MYOCARDIAL INFARCTION
     Route: 048
     Dates: start: 20110101

REACTIONS (2)
  - INCORRECT DRUG ADMINISTRATION DURATION [None]
  - GASTRITIS EROSIVE [None]
